FAERS Safety Report 12817381 (Version 1)
Quarter: 2016Q4

REPORT INFORMATION
  Report Type: Spontaneous
  Country: CA (occurrence: CA)
  Receive Date: 20161006
  Receipt Date: 20161006
  Transmission Date: 20170207
  Serious: Yes (Other)
  Sender: FDA-Public Use
  Company Number: CA-ROCHE-1838160

PATIENT
  Age: 58 Year
  Sex: Male

DRUGS (12)
  1. XOLAIR [Suspect]
     Active Substance: OMALIZUMAB
     Dosage: 300 MG, BIW
     Route: 058
     Dates: start: 20160825, end: 20160825
  2. XOLAIR [Suspect]
     Active Substance: OMALIZUMAB
     Dosage: UNK
     Route: 058
     Dates: start: 20160811
  3. ZESTRIL [Concomitant]
     Active Substance: LISINOPRIL
     Indication: PRODUCT USED FOR UNKNOWN INDICATION
     Dosage: 10 MG, QD
     Route: 065
  4. ADVAIR HFA [Concomitant]
     Active Substance: FLUTICASONE PROPIONATE\SALMETEROL XINAFOATE
     Indication: PRODUCT USED FOR UNKNOWN INDICATION
     Dosage: 500/50 MG, BID
     Route: 065
  5. SPIRIVA [Concomitant]
     Active Substance: TIOTROPIUM BROMIDE MONOHYDRATE
     Indication: PRODUCT USED FOR UNKNOWN INDICATION
     Dosage: 15 MG, QD
     Route: 065
  6. NASONEX [Concomitant]
     Active Substance: MOMETASONE FUROATE
     Indication: PRODUCT USED FOR UNKNOWN INDICATION
     Route: 065
  7. XOLAIR [Suspect]
     Active Substance: OMALIZUMAB
     Indication: ASTHMA
     Dosage: 300 MG, BIW
     Route: 058
     Dates: start: 20160728
  8. HYDROCHLOROTHIAZIDE. [Concomitant]
     Active Substance: HYDROCHLOROTHIAZIDE
     Indication: PRODUCT USED FOR UNKNOWN INDICATION
     Dosage: 12.5 MG, QD
     Route: 065
  9. AVAMYS [Concomitant]
     Active Substance: FLUTICASONE FUROATE
     Indication: PRODUCT USED FOR UNKNOWN INDICATION
     Dosage: 2 DF, QD
     Route: 055
  10. VENTOLIN [Concomitant]
     Active Substance: ALBUTEROL SULFATE
     Indication: PRODUCT USED FOR UNKNOWN INDICATION
     Dosage: 2 DF (INHALATION), PRN
     Route: 055
  11. ALVESCO [Concomitant]
     Active Substance: CICLESONIDE
     Indication: PRODUCT USED FOR UNKNOWN INDICATION
     Dosage: 2 DF, QD
     Route: 055
  12. PULMICORT TURBUHALER [Concomitant]
     Active Substance: BUDESONIDE
     Indication: PRODUCT USED FOR UNKNOWN INDICATION
     Dosage: 0.5 MG/ML, BID
     Route: 065

REACTIONS (23)
  - Sputum discoloured [Unknown]
  - Hyperhidrosis [Unknown]
  - Fatigue [Unknown]
  - Visual impairment [Unknown]
  - Back pain [Unknown]
  - Sneezing [Unknown]
  - Discomfort [Unknown]
  - Night sweats [Recovering/Resolving]
  - Chills [Unknown]
  - Respiratory tract congestion [Unknown]
  - Eye swelling [Recovering/Resolving]
  - Middle insomnia [Unknown]
  - Cough [Unknown]
  - Decreased appetite [Unknown]
  - Eye discharge [Unknown]
  - Asthma [Unknown]
  - Dyspnoea [Unknown]
  - Productive cough [Recovering/Resolving]
  - Myalgia [Recovering/Resolving]
  - Arthralgia [Recovering/Resolving]
  - Malaise [Recovering/Resolving]
  - Oropharyngeal pain [Recovering/Resolving]
  - Urticaria [Unknown]

NARRATIVE: CASE EVENT DATE: 201608
